FAERS Safety Report 26180087 (Version 1)
Quarter: 2025Q4

REPORT INFORMATION
  Report Type: Spontaneous
  Country: US (occurrence: US)
  Receive Date: 20251219
  Receipt Date: 20251219
  Transmission Date: 20260118
  Serious: Yes (Other)
  Sender: ELI LILLY AND COMPANY
  Company Number: US-ELI_LILLY_AND_COMPANY-US202512023472

PATIENT
  Age: 82 Year
  Sex: Female

DRUGS (4)
  1. ZEPBOUND [Suspect]
     Active Substance: TIRZEPATIDE
     Indication: Weight control
     Dosage: 2.5 MG, UNKNOWN
     Route: 065
     Dates: start: 20250226
  2. ZEPBOUND [Suspect]
     Active Substance: TIRZEPATIDE
     Dosage: 2.5 MG, UNKNOWN
     Route: 065
  3. CELEBREX [Suspect]
     Active Substance: CELECOXIB
     Indication: Arthritis
     Dosage: UNK UNK, UNKNOWN
     Route: 065
  4. MELOXICAM [Suspect]
     Active Substance: MELOXICAM
     Indication: Arthritis
     Dosage: UNK UNK, UNKNOWN
     Route: 065

REACTIONS (3)
  - Ulcer haemorrhage [Unknown]
  - Arthritis [Not Recovered/Not Resolved]
  - Blood pressure increased [Unknown]
